FAERS Safety Report 15606052 (Version 1)
Quarter: 2018Q4

REPORT INFORMATION
  Report Type: Spontaneous
  Country: US (occurrence: US)
  Receive Date: 20181106
  Receipt Date: 20181106
  Transmission Date: 20190205
  Serious: Yes (Hospitalization)
  Sender: FDA-Public Use
  Company Number: None

PATIENT
  Age: 78 Year
  Sex: Male

DRUGS (1)
  1. LETAIRIS [Suspect]
     Active Substance: AMBRISENTAN
     Indication: PULMONARY ARTERIAL HYPERTENSION
     Route: 048
     Dates: start: 20170424

REACTIONS (7)
  - Brain natriuretic peptide increased [None]
  - Fluid overload [None]
  - Head injury [None]
  - Fall [None]
  - Hypoxia [None]
  - Weight increased [None]
  - Cardiac failure [None]

NARRATIVE: CASE EVENT DATE: 20181012
